FAERS Safety Report 7297577-8 (Version None)
Quarter: 2011Q1

REPORT INFORMATION
  Report Type: 
  Country: None (occurrence: None)
  Receive Date: 20110216
  Receipt Date: 20110202
  Transmission Date: 20110831
  Serious: Yes (Hospitalization)
  Sender: FDA-Public Use
  Company Number: FR-BAXTER-2011BH000615

PATIENT
  Age: 83 Year
  Sex: Female

DRUGS (8)
  1. CYCLOPHOSPHAMIDE [Suspect]
     Indication: BREAST CANCER
     Route: 042
     Dates: start: 20101214, end: 20101214
  2. TAXOTERE [Suspect]
     Indication: BREAST CANCER
     Route: 042
     Dates: start: 20101214, end: 20101214
  3. TAXOTERE [Suspect]
     Route: 042
     Dates: start: 20110127, end: 20110127
  4. ZOPHREN [Concomitant]
     Indication: PREMEDICATION
     Route: 065
     Dates: start: 20101214, end: 20101214
  5. TAXOTERE [Suspect]
     Route: 042
     Dates: start: 20110106, end: 20110106
  6. MEDROL [Concomitant]
     Indication: PREMEDICATION
     Route: 065
     Dates: start: 20101214, end: 20101214
  7. CYCLOPHOSPHAMIDE [Suspect]
     Route: 042
     Dates: start: 20110106, end: 20110106
  8. CYCLOPHOSPHAMIDE [Suspect]
     Route: 042
     Dates: start: 20110127, end: 20110127

REACTIONS (1)
  - DYSPNOEA [None]
